FAERS Safety Report 21460357 (Version 1)
Quarter: 2022Q4

REPORT INFORMATION
  Report Type: Spontaneous
  Country: SO (occurrence: SO)
  Receive Date: 20221014
  Receipt Date: 20221014
  Transmission Date: 20230112
  Serious: Yes (Other)
  Sender: FDA-Public Use
  Company Number: SO-PAIPHARMA-2022-SO-000005

PATIENT
  Age: 26 Year
  Sex: Female
  Weight: 95 kg

DRUGS (1)
  1. PREDNISOLONE SODIUM PHOSPHATE [Suspect]
     Active Substance: PREDNISOLONE SODIUM PHOSPHATE
     Indication: Pustular psoriasis
     Dosage: 4 MG DAILY

REACTIONS (1)
  - Stillbirth [Unknown]
